FAERS Safety Report 8187841-2 (Version None)
Quarter: 2012Q1

REPORT INFORMATION
  Report Type: 
  Country: None (occurrence: None)
  Receive Date: 20120306
  Receipt Date: 20120229
  Transmission Date: 20120608
  Serious: Yes (Hospitalization)
  Sender: FDA-Public Use
  Company Number: US-BAYER-200943503NA

PATIENT
  Age: 31 Year
  Sex: Female
  Weight: 77.098 kg

DRUGS (2)
  1. VALTREX [Concomitant]
  2. DROSPIRENONE AND ETHINYL ESTRADIOL [Suspect]
     Indication: ORAL CONTRACEPTION
     Dosage: UNK
     Route: 048
     Dates: start: 20080731, end: 20090124

REACTIONS (11)
  - PULMONARY EMBOLISM [None]
  - PLEURITIC PAIN [None]
  - PAIN IN EXTREMITY [None]
  - DYSPNOEA [None]
  - VENOUS INSUFFICIENCY [None]
  - OEDEMA PERIPHERAL [None]
  - MUSCLE SPASMS [None]
  - DEEP VEIN THROMBOSIS [None]
  - ATELECTASIS [None]
  - PULMONARY FIBROSIS [None]
  - THROMBOSIS [None]
